FAERS Safety Report 23746362 (Version 2)
Quarter: 2024Q2

REPORT INFORMATION
  Report Type: Spontaneous
  Country: US (occurrence: US)
  Receive Date: 20240416
  Receipt Date: 20240507
  Transmission Date: 20240715
  Serious: Yes (Other)
  Sender: FDA-Public Use
  Company Number: US-ORGANON-O2404USA001520

PATIENT
  Age: 21 Year
  Sex: Female
  Weight: 118.82 kg

DRUGS (1)
  1. NEXPLANON [Suspect]
     Active Substance: ETONOGESTREL
     Indication: Contraception
     Dosage: 1 IMPLANT (68 MG) (LEFT ARM)
     Route: 059
     Dates: start: 20240322, end: 2024

REACTIONS (4)
  - Device dislocation [Recovered/Resolved]
  - Device kink [Recovered/Resolved]
  - Implant site erythema [Unknown]
  - Implant site pain [Unknown]

NARRATIVE: CASE EVENT DATE: 20240301
